FAERS Safety Report 7246736-9 (Version None)
Quarter: 2011Q1

REPORT INFORMATION
  Report Type: 
  Country: None (occurrence: None)
  Receive Date: 20110127
  Receipt Date: 20110118
  Transmission Date: 20110831
  Serious: Yes (Hospitalization)
  Sender: FDA-Public Use
  Company Number: JP-JNJFOC-20101107599

PATIENT
  Sex: Female

DRUGS (4)
  1. DUROTEP MT [Suspect]
     Dosage: 12.5 UG/HR PLUS 12.5 UG/HR
     Route: 062
  2. OXYCODONE HCL [Concomitant]
     Route: 048
  3. DUROTEP MT [Suspect]
     Indication: METASTASES TO BONE
     Dosage: 25UG/HR PLUS 25UG/HR
     Route: 062
  4. UNKNOWN MEDICATION [Concomitant]
     Route: 065

REACTIONS (2)
  - BLOOD PRESSURE INCREASED [None]
  - CONDITION AGGRAVATED [None]
